FAERS Safety Report 16759579 (Version 1)
Quarter: 2019Q4

REPORT INFORMATION
  Report Type: Spontaneous
  Country: US (occurrence: US)
  Receive Date: 20190830
  Receipt Date: 20190830
  Transmission Date: 20200122
  Serious: No
  Sender: FDA-Public Use
  Company Number: None

PATIENT
  Age: 23 Year
  Sex: Female
  Weight: 87.75 kg

DRUGS (1)
  1. XOLAIR [Suspect]
     Active Substance: OMALIZUMAB
     Indication: CHRONIC SPONTANEOUS URTICARIA
     Dosage: ?          QUANTITY:2 INJECTION(S);OTHER FREQUENCY:ONCE A MONTH;OTHER ROUTE:INJECTION FOR SUBCUTANEOUS USE?
     Dates: start: 20190826

REACTIONS (5)
  - Migraine [None]
  - Pain [None]
  - Urticaria [None]
  - Nausea [None]
  - Upper respiratory tract infection [None]

NARRATIVE: CASE EVENT DATE: 20190826
